FAERS Safety Report 5549931-X (Version None)
Quarter: 2007Q4

REPORT INFORMATION
  Report Type: 
  Country: None (occurrence: None)
  Receive Date: 20071212
  Receipt Date: 20071128
  Transmission Date: 20080405
  Serious: Yes (Death, Hospitalization)
  Sender: FDA-Public Use
  Company Number: NL-AMGEN-UK254930

PATIENT
  Sex: Male
  Weight: 70 kg

DRUGS (13)
  1. ARANESP [Suspect]
     Indication: RENAL FAILURE CHRONIC
     Route: 065
     Dates: start: 20070403
  2. ACENOCOUMAROL [Concomitant]
     Route: 048
  3. NEXIUM [Concomitant]
     Route: 048
  4. SELOKEEN ZOC [Concomitant]
     Route: 048
  5. LACTULOSE [Concomitant]
     Route: 048
  6. OSTAC [Concomitant]
     Route: 048
  7. MONO-CEDOCARD [Concomitant]
     Route: 048
  8. LANOXIN [Concomitant]
     Route: 048
  9. LASIX [Concomitant]
     Route: 048
  10. ALDACTONE [Concomitant]
     Route: 048
  11. SYMBICORT [Concomitant]
     Route: 055
  12. HYDROCOBAMINE [Concomitant]
     Route: 065
  13. ZOFIL [Concomitant]
     Route: 048

REACTIONS (8)
  - ASTHENIA [None]
  - HEADACHE [None]
  - HYPOTENSION [None]
  - LEUKOPENIA [None]
  - MALAISE [None]
  - NAUSEA [None]
  - PYREXIA [None]
  - SHOCK [None]
